FAERS Safety Report 6885013-2 (Version None)
Quarter: 2010Q3

REPORT INFORMATION
  Report Type: 
  Country: None (occurrence: None)
  Receive Date: 20100729
  Receipt Date: 20071010
  Transmission Date: 20110219
  Serious: No
  Sender: FDA-Public Use
  Company Number: US-PFIZER INC-2007084185

PATIENT
  Age: 40 Year
  Sex: Male

DRUGS (3)
  1. CELEBREX [Suspect]
     Indication: BACK PAIN
  2. LYRICA [Suspect]
     Indication: BACK PAIN
     Dates: start: 20070101
  3. ULTRAM [Concomitant]

REACTIONS (2)
  - BACK PAIN [None]
  - LIBIDO INCREASED [None]
